FAERS Safety Report 17829806 (Version 1)
Quarter: 2020Q2

REPORT INFORMATION
  Report Type: Spontaneous
  Country: RU (occurrence: RU)
  Receive Date: 20200527
  Receipt Date: 20200527
  Transmission Date: 20200714
  Serious: Yes (Hospitalization)
  Sender: FDA-Public Use
  Company Number: NVSC2020RU130597

PATIENT
  Sex: Male

DRUGS (1)
  1. ZOLGENSMA [Suspect]
     Active Substance: ONASEMNOGENE ABEPARVOVEC-XIOI
     Indication: PRODUCT USED FOR UNKNOWN INDICATION
     Route: 065

REACTIONS (8)
  - Insomnia [Unknown]
  - Vomiting [Unknown]
  - Blood glucose increased [Unknown]
  - Pyrexia [Unknown]
  - Hepatic enzyme increased [Recovered/Resolved]
  - Chills [Unknown]
  - Tachycardia [Unknown]
  - Crying [Unknown]
